FAERS Safety Report 6745111-0 (Version None)
Quarter: 2010Q2

REPORT INFORMATION
  Report Type: 
  Country: None (occurrence: None)
  Receive Date: 20100527
  Receipt Date: 20100517
  Transmission Date: 20101027
  Serious: Yes (Death)
  Sender: FDA-Public Use
  Company Number: JP-WATSON-2010-06810

PATIENT
  Age: 68 Year
  Sex: Female

DRUGS (3)
  1. DEXAMETHASONE (WATSON LABORATORIES) [Suspect]
     Indication: ANTIEMETIC SUPPORTIVE CARE
     Dosage: 24 MG, DAY 1
     Route: 042
  2. DEXAMETHASONE (WATSON LABORATORIES) [Suspect]
     Dosage: 8 -16 MG, DAILY DAYS 2-4
     Route: 048
  3. DEXAMETHASONE (WATSON LABORATORIES) [Suspect]
     Dosage: 8 MG, DAILY DAYS 5-6
     Route: 048

REACTIONS (3)
  - COMPLETED SUICIDE [None]
  - DEPRESSION [None]
  - WITHDRAWAL SYNDROME [None]
